FAERS Safety Report 23580007 (Version 1)
Quarter: 2024Q1

REPORT INFORMATION
  Report Type: Spontaneous
  Country: US (occurrence: None)
  Receive Date: 20240228
  Receipt Date: 20240228
  Transmission Date: 20240410
  Serious: Yes (Hospitalization)
  Sender: FDA-Public Use
  Company Number: None

PATIENT
  Sex: Male

DRUGS (2)
  1. TOBRAMYCIN INHALATION SOLUTION [Suspect]
     Active Substance: TOBRAMYCIN
     Indication: Cystic fibrosis
     Dosage: 300MG INHALATION??INHALE THE CONTENTS OF 1 AMPULE VIA NEBULIZER EVERY 12 HOURS FOR 28 DAYS ON, THEN
     Route: 055
     Dates: start: 202205
  2. PULMOZYME [Suspect]
     Active Substance: DORNASE ALFA
     Indication: Cystic fibrosis
     Dosage: 1MG/ML ONCE A DAY INHALATION
     Route: 055
     Dates: start: 202109

REACTIONS (2)
  - Pneumonia [None]
  - Condition aggravated [None]
